FAERS Safety Report 8157589-9 (Version None)
Quarter: 2012Q1

REPORT INFORMATION
  Report Type: 
  Country: None (occurrence: None)
  Receive Date: 20120222
  Receipt Date: 20110307
  Transmission Date: 20120608
  Serious: No
  Sender: FDA-Public Use
  Company Number: US-ASTRAZENECA-2011SE14264

PATIENT
  Age: 59 Year
  Sex: Female

DRUGS (10)
  1. CRESTOR [Suspect]
     Route: 048
  2. CALCIUM 600+D [Concomitant]
     Dosage: 600-400 MG UNIT ONCE A DAY
     Route: 048
  3. METFORMIN HCL [Concomitant]
     Dosage: 1 TABLET IN THE MORNING AND LUNCH AND 2 AT DINNER
     Route: 048
  4. GLIMEPIRIDE [Concomitant]
     Route: 048
  5. ATENOLOL [Suspect]
     Route: 048
  6. PLAVIX [Concomitant]
     Route: 048
  7. ALENDRONATE SODIUM [Concomitant]
     Route: 048
  8. ASPIRIN [Concomitant]
     Route: 048
  9. AMLODIPINE BESYLATE [Concomitant]
     Route: 048
  10. AVAPRO [Concomitant]
     Route: 048

REACTIONS (4)
  - LOW DENSITY LIPOPROTEIN INCREASED [None]
  - ARTHRITIS [None]
  - CARDIAC DISORDER [None]
  - DIABETES MELLITUS [None]
